FAERS Safety Report 8241071-4 (Version None)
Quarter: 2012Q1

REPORT INFORMATION
  Report Type: 
  Country: None (occurrence: None)
  Receive Date: 20120328
  Receipt Date: 20120322
  Transmission Date: 20120608
  Serious: Yes (Hospitalization)
  Sender: FDA-Public Use
  Company Number: US-GLAXOSMITHKLINE-A0898789A

PATIENT
  Sex: Female
  Weight: 104.1 kg

DRUGS (4)
  1. LOVASTATIN [Concomitant]
  2. GLYBURIDE [Concomitant]
  3. AVANDIA [Suspect]
     Indication: DIABETES MELLITUS
     Dosage: 4MG PER DAY
     Route: 048
     Dates: start: 20060310, end: 20070726
  4. METFORMIN HCL [Concomitant]

REACTIONS (5)
  - HEART RATE IRREGULAR [None]
  - CARDIAC FAILURE [None]
  - ASTHMA [None]
  - ACUTE CORONARY SYNDROME [None]
  - HAND FRACTURE [None]
